FAERS Safety Report 25076469 (Version 1)
Quarter: 2025Q1

REPORT INFORMATION
  Report Type: Spontaneous
  Country: ES (occurrence: ES)
  Receive Date: 20250313
  Receipt Date: 20250313
  Transmission Date: 20250409
  Serious: Yes (Death)
  Sender: Atnahs Healthcare
  Company Number: ES-ATNAHS-ATNAHS20241200948

PATIENT
  Age: 53 Year
  Sex: Male
  Weight: 82 kg

DRUGS (7)
  1. NAPROXEN [Suspect]
     Active Substance: NAPROXEN
     Indication: Fracture
     Dosage: 550 MILLIGRAM, 2X/DAY
  2. DIAZEPAM [Suspect]
     Active Substance: DIAZEPAM
     Indication: Product used for unknown indication
  3. DEXKETOPROFEN [Suspect]
     Active Substance: DEXKETOPROFEN
     Indication: Product used for unknown indication
  4. DEXKETOPROFEN [Suspect]
     Active Substance: DEXKETOPROFEN
     Dosage: 3 - 25 MG
  5. METAMIZOLE CALCIUM [Suspect]
     Active Substance: METAMIZOLE CALCIUM
     Indication: Product used for unknown indication
     Dosage: 575 MILLIGRAM, 3X/DAY
  6. TRAMADOL HYDROCHLORIDE [Suspect]
     Active Substance: TRAMADOL HYDROCHLORIDE
     Indication: Musculoskeletal chest pain
  7. MEPERIDINE HYDROCHLORIDE [Suspect]
     Active Substance: MEPERIDINE HYDROCHLORIDE
     Indication: Product used for unknown indication

REACTIONS (1)
  - Duodenal ulcer [Fatal]
